FAERS Safety Report 5254810-1 (Version None)
Quarter: 2007Q1

REPORT INFORMATION
  Report Type: 
  Country: None (occurrence: None)
  Receive Date: 20070305
  Receipt Date: 20070219
  Transmission Date: 20070707
  Serious: Yes (Life-Threatening, Hospitalization)
  Sender: FDA-Public Use
  Company Number: IT-ELI_LILLY_AND_COMPANY-EWC011229464

PATIENT
  Age: 95 Year
  Sex: Female

DRUGS (7)
  1. ZYPREXA [Suspect]
     Indication: AGITATION
     Dosage: 2.5 MG, DAILY (1/D)
     Route: 048
     Dates: start: 20011124, end: 20011126
  2. ROCEPHIN [Concomitant]
     Indication: PROPHYLAXIS
     Dosage: 2 G, DAILY (1/D)
     Route: 042
     Dates: start: 20011122, end: 20011129
  3. ENAPREN [Concomitant]
     Indication: HYPERTENSION
     Dosage: 5 MG, DAILY (1/D)
     Route: 048
  4. LASIX [Concomitant]
     Indication: HYPERTENSION
     Dosage: 25 MG, 2/D
     Route: 048
  5. CLEXANE [Concomitant]
     Indication: PROPHYLAXIS
     Dosage: 4000 IU, DAILY (1/D)
     Route: 058
     Dates: start: 20011022, end: 20011129
  6. ACTRAPID [Concomitant]
     Indication: BLOOD GLUCOSE FLUCTUATION
     Dosage: 5 IU, DAILY (1/D)
     Route: 042
     Dates: start: 20011123, end: 20011127
  7. ZANTAC [Concomitant]
     Indication: PROPHYLAXIS
     Dosage: 100 MG, DAILY (1/D)
     Route: 042
     Dates: start: 20011123, end: 20011127

REACTIONS (4)
  - CARDIAC FAILURE CONGESTIVE [None]
  - DEPRESSED LEVEL OF CONSCIOUSNESS [None]
  - HYPOGLYCAEMIC COMA [None]
  - MYOCARDIAL ISCHAEMIA [None]
